FAERS Safety Report 14102716 (Version 3)
Quarter: 2017Q4

REPORT INFORMATION
  Report Type: Spontaneous
  Country: US (occurrence: US)
  Receive Date: 20171018
  Receipt Date: 20171116
  Transmission Date: 20180321
  Serious: Yes (Hospitalization)
  Sender: FDA-Public Use
  Company Number: US-VERTEX PHARMACEUTICALS-2017-005643

PATIENT
  Age: 24 Year
  Sex: Female

DRUGS (1)
  1. ORKAMBI [Suspect]
     Active Substance: IVACAFTOR\LUMACAFTOR
     Indication: CYSTIC FIBROSIS
     Dosage: 2 DOSAGE FORM (200/125 MG EACH), BID
     Route: 048
     Dates: start: 201509

REACTIONS (1)
  - Infective pulmonary exacerbation of cystic fibrosis [Recovered/Resolved]

NARRATIVE: CASE EVENT DATE: 20171006
